FAERS Safety Report 25503002 (Version 1)
Quarter: 2025Q3

REPORT INFORMATION
  Report Type: Spontaneous
  Country: US (occurrence: US)
  Receive Date: 20250702
  Receipt Date: 20250702
  Transmission Date: 20251020
  Serious: No
  Sender: LYNE LABORATORIES
  Company Number: US-Lyne Laboratories Inc.-2179756

PATIENT
  Sex: Female

DRUGS (5)
  1. NYSTATIN [Suspect]
     Active Substance: NYSTATIN
     Indication: Product used for unknown indication
  2. AMPICILLIN\CLOXACILLIN [Suspect]
     Active Substance: AMPICILLIN\CLOXACILLIN
  3. CLOTRIMAZOLE\ICHTHAMMOL [Suspect]
     Active Substance: CLOTRIMAZOLE\ICHTHAMMOL
  4. TERBINAFINE HYDROCHLORIDE [Suspect]
     Active Substance: TERBINAFINE HYDROCHLORIDE
  5. CEFUROXIME [Suspect]
     Active Substance: CEFUROXIME

REACTIONS (1)
  - Drug ineffective [Unknown]
